FAERS Safety Report 21754124 (Version 1)
Quarter: 2022Q4

REPORT INFORMATION
  Report Type: Spontaneous
  Country: US (occurrence: None)
  Receive Date: 20221219
  Receipt Date: 20221219
  Transmission Date: 20230113
  Serious: Yes (Disabling)
  Sender: FDA-Public Use
  Company Number: None

PATIENT
  Age: 53 Year
  Sex: Female
  Weight: 112.5 kg

DRUGS (8)
  1. OCREVUS [Suspect]
     Active Substance: OCRELIZUMAB
     Indication: Secondary progressive multiple sclerosis
     Dosage: OTHER QUANTITY : 1 INFUSION;?OTHER FREQUENCY : EVERY 6 MONTHS;?OTHER ROUTE : INFUSION;?
     Route: 050
     Dates: start: 20220515
  2. LISINOPRIL [Concomitant]
     Active Substance: LISINOPRIL
  3. GABAPENTIN [Concomitant]
     Active Substance: GABAPENTIN
  4. EFFEXOR [Concomitant]
     Active Substance: VENLAFAXINE HYDROCHLORIDE
  5. omepresol [Concomitant]
  6. VITAMINS [Concomitant]
     Active Substance: VITAMINS
  7. BIOTIN [Concomitant]
     Active Substance: BIOTIN
  8. COLLAGEN [Concomitant]
     Active Substance: COLLAGEN

REACTIONS (11)
  - Dizziness [None]
  - Alopecia [None]
  - Muscular weakness [None]
  - Fatigue [None]
  - Hyperhidrosis [None]
  - Colitis [None]
  - Feeling abnormal [None]
  - Gait disturbance [None]
  - Diarrhoea [None]
  - Abdominal pain [None]
  - Somnolence [None]

NARRATIVE: CASE EVENT DATE: 20220610
